FAERS Safety Report 23953008 (Version 1)
Quarter: 2024Q2

REPORT INFORMATION
  Report Type: Report from Study
  Country: CH (occurrence: CH)
  Receive Date: 20240608
  Receipt Date: 20240608
  Transmission Date: 20240716
  Serious: Yes (Other)
  Sender: FDA-Public Use
  Company Number: CH-ABBVIE-5761270

PATIENT
  Age: 73 Year
  Sex: Male
  Weight: 100 kg

DRUGS (2)
  1. CARBIDOPA\LEVODOPA [Suspect]
     Active Substance: CARBIDOPA\LEVODOPA
     Indication: Parkinson^s disease
     Route: 050
     Dates: start: 20140115
  2. CARBIDOPA\LEVODOPA [Suspect]
     Active Substance: CARBIDOPA\LEVODOPA
     Dosage: MD: 5.0 ML, CRD: 4.1 ML/H, ED: 2.0 ML, FREQUENCY:16H THERAPY
     Route: 050
     Dates: start: 20240506

REACTIONS (9)
  - Cerebrovascular accident [Unknown]
  - Papule [Unknown]
  - Off label use [Not Recovered/Not Resolved]
  - Cerebrovascular disorder [Unknown]
  - Device issue [Unknown]
  - Speech disorder [Not Recovered/Not Resolved]
  - Facial paralysis [Not Recovered/Not Resolved]
  - Fall [Unknown]
  - Device leakage [Unknown]

NARRATIVE: CASE EVENT DATE: 20240401
